FAERS Safety Report 18446613 (Version 2)
Quarter: 2020Q4

REPORT INFORMATION
  Report Type: Spontaneous
  Country: AU (occurrence: AU)
  Receive Date: 20201030
  Receipt Date: 20201211
  Transmission Date: 20210114
  Serious: No
  Sender: FDA-Public Use
  Company Number: AU-ASTRAZENECA-2020SF38858

PATIENT
  Age: 13903 Day
  Sex: Female

DRUGS (4)
  1. AMOXICILLIN. [Suspect]
     Active Substance: AMOXICILLIN
     Indication: HELICOBACTER INFECTION
     Dosage: 500 MG
     Route: 065
     Dates: start: 20201116, end: 20201118
  2. NEXIUM HP7 [Suspect]
     Active Substance: AMOXICILLIN\CLARITHROMYCIN\ESOMEPRAZOLE
     Indication: HELICOBACTER INFECTION
     Dosage: 20 MG
     Route: 048
     Dates: start: 20201116, end: 20201118
  3. CLARITHROMYCIN. [Suspect]
     Active Substance: CLARITHROMYCIN
     Indication: HELICOBACTER INFECTION
     Dosage: 500 MG
     Route: 065
     Dates: start: 20201116, end: 20201118
  4. SEROQUEL [Concomitant]
     Active Substance: QUETIAPINE FUMARATE
     Route: 065

REACTIONS (8)
  - Panic attack [Recovered/Resolved]
  - Headache [Recovered/Resolved]
  - Insomnia [Recovered/Resolved]
  - Psychotic disorder [Recovered/Resolved]
  - Discomfort [Recovered/Resolved]
  - Euphoric mood [Recovered/Resolved]
  - Intentional product misuse [Recovered/Resolved]
  - Morbid thoughts [Unknown]

NARRATIVE: CASE EVENT DATE: 20201119
